FAERS Safety Report 24231951 (Version 2)
Quarter: 2024Q3

REPORT INFORMATION
  Report Type: Spontaneous
  Country: FR (occurrence: FR)
  Receive Date: 20240821
  Receipt Date: 20240831
  Transmission Date: 20241016
  Serious: Yes (Life-Threatening, Hospitalization, Other)
  Sender: AUROBINDO
  Company Number: FR-AUROBINDO-AUR-APL-2021-000693

PATIENT
  Age: 60 Year
  Sex: Female
  Weight: 103 kg

DRUGS (6)
  1. DOCETAXEL [Suspect]
     Active Substance: DOCETAXEL\DOCETAXEL ANHYDROUS
     Indication: Breast cancer
     Dosage: 100 MILLIGRAM/SQ. METER (200MG) 3 TREATMENTS EVERY 3 WEEKS
     Route: 065
  2. DOCETAXEL [Suspect]
     Active Substance: DOCETAXEL\DOCETAXEL ANHYDROUS
     Dosage: 100 MILLIGRAM/SQ. METER (200MG) 3 TREATMENTS EVERY 3 WEEKS, RECEIVED 3 COURSES OF THE THERAPY AT A D
     Route: 065
  3. DOCETAXEL [Suspect]
     Active Substance: DOCETAXEL\DOCETAXEL ANHYDROUS
     Dosage: 200 MILLIGRAM/SQ. METER, EVERY 3 WEEKS
     Route: 065
  4. FLUOROURACIL [Concomitant]
     Active Substance: FLUOROURACIL
     Indication: Breast cancer
     Dosage: NOT REPORTED EVERY 3 WEEKS
     Route: 065
  5. CYCLOPHOSPHAMIDE [Concomitant]
     Active Substance: CYCLOPHOSPHAMIDE
     Indication: Breast cancer
     Dosage: NOT REPORTED EVERY 3 WEEKS
     Route: 065
  6. EPIRUBICIN [Concomitant]
     Active Substance: EPIRUBICIN
     Indication: Breast cancer
     Dosage: NOT REPORTED EVERY 3 WEEKS
     Route: 065

REACTIONS (25)
  - Blood creatinine increased [Unknown]
  - Blood urea increased [Unknown]
  - Carbon dioxide decreased [Unknown]
  - Blood pH increased [Unknown]
  - PO2 decreased [Unknown]
  - Neutropenic colitis [Recovering/Resolving]
  - Headache [Recovering/Resolving]
  - Dehydration [Recovering/Resolving]
  - Vomiting [Recovering/Resolving]
  - Abdominal pain [Recovered/Resolved]
  - Acute kidney injury [Unknown]
  - Oliguria [Recovering/Resolving]
  - Respiratory alkalosis [Recovering/Resolving]
  - Diarrhoea [Recovering/Resolving]
  - Sepsis [Recovering/Resolving]
  - Tachycardia [Recovering/Resolving]
  - C-reactive protein increased [Recovering/Resolving]
  - Blood pressure decreased [Recovered/Resolved]
  - Pyrexia [Recovered/Resolved]
  - Leukopenia [Recovering/Resolving]
  - Agitation [Recovering/Resolving]
  - Abdominal rigidity [Recovering/Resolving]
  - General physical health deterioration [Recovering/Resolving]
  - Septic shock [Recovering/Resolving]
  - Circulatory collapse [Recovered/Resolved]
